FAERS Safety Report 8211010-0 (Version None)
Quarter: 2012Q1

REPORT INFORMATION
  Report Type: 
  Country: None (occurrence: None)
  Receive Date: 20120315
  Receipt Date: 20120306
  Transmission Date: 20120608
  Serious: Yes (Other)
  Sender: FDA-Public Use
  Company Number: PHEH2012US005206

PATIENT
  Sex: Female

DRUGS (3)
  1. VITAMIN D [Concomitant]
     Dosage: 50000 IU, UNK
  2. RECLAST [Suspect]
     Indication: OSTEOPOROSIS
     Dosage: UNK UKN, UNK
     Route: 042
     Dates: start: 20110811
  3. VITAMIN D [Concomitant]
     Dosage: 1000 IU, UNK

REACTIONS (3)
  - ARTHRALGIA [None]
  - VITAMIN D DECREASED [None]
  - JOINT INJURY [None]
